FAERS Safety Report 13603084 (Version 1)
Quarter: 2017Q2

REPORT INFORMATION
  Report Type: Spontaneous
  Country: US (occurrence: US)
  Receive Date: 20170601
  Receipt Date: 20170601
  Transmission Date: 20170830
  Serious: No
  Sender: FDA-Public Use
  Company Number: US-BEH-2017080889

PATIENT
  Age: 50 Year
  Sex: Male
  Weight: 65.76 kg

DRUGS (28)
  1. ZEMAIRA [Suspect]
     Active Substance: .ALPHA.1-PROTEINASE INHIBITOR HUMAN
     Indication: ALPHA-1 ANTI-TRYPSIN DEFICIENCY
     Dosage: 60 MG/KG, QW
     Route: 042
     Dates: start: 20160113
  2. VITAMIN B12 [Concomitant]
     Active Substance: CYANOCOBALAMIN
     Route: 065
  3. CLOFAZIMINE [Concomitant]
     Active Substance: CLOFAZIMINE
     Route: 065
  4. STERILE WATER [Concomitant]
     Active Substance: WATER
     Route: 065
  5. VITAMIN D3 [Concomitant]
     Active Substance: CHOLECALCIFEROL
     Route: 065
  6. TRAMADOL. [Concomitant]
     Active Substance: TRAMADOL
     Route: 065
  7. SPIRIVA [Concomitant]
     Active Substance: TIOTROPIUM BROMIDE MONOHYDRATE
     Route: 065
  8. XOPENEX [Concomitant]
     Active Substance: LEVALBUTEROL HYDROCHLORIDE
     Route: 065
  9. OMEPRAZOLE                         /00661202/ [Concomitant]
     Route: 065
  10. RIFABUTIN. [Concomitant]
     Active Substance: RIFABUTIN
     Route: 065
  11. CATHFLO ACTIVASE [Concomitant]
     Active Substance: ALTEPLASE
     Route: 065
  12. HEPARIN [Concomitant]
     Active Substance: HEPARIN SODIUM
     Route: 065
  13. EPIPEN [Concomitant]
     Active Substance: EPINEPHRINE
     Route: 065
  14. LMX                                /00033401/ [Concomitant]
     Route: 065
  15. PREDNISONE. [Concomitant]
     Active Substance: PREDNISONE
     Route: 065
  16. FISH OIL W/VITAMIN D3 [Concomitant]
     Route: 065
  17. PROBIOTIC                          /06395501/ [Concomitant]
     Active Substance: BIFIDOBACTERIUM ANIMALIS SUBSP. LACTIS
     Route: 065
  18. AZITHROMYCIN ANHYDROUS. [Concomitant]
     Active Substance: AZITHROMYCIN ANHYDROUS
     Route: 065
  19. DALIRESP [Concomitant]
     Active Substance: ROFLUMILAST
     Route: 065
  20. VITAMIN B-6 [Concomitant]
     Active Substance: PYRIDOXINE
     Route: 065
  21. DIPHENHYDRAMINE. [Concomitant]
     Active Substance: DIPHENHYDRAMINE
     Route: 065
  22. XANAX [Concomitant]
     Active Substance: ALPRAZOLAM
     Route: 065
  23. GABAPENTIN. [Concomitant]
     Active Substance: GABAPENTIN
     Route: 065
  24. IBUPROFEN. [Concomitant]
     Active Substance: IBUPROFEN
     Route: 065
  25. ALBUTEROL                          /00139501/ [Concomitant]
     Active Substance: ALBUTEROL
     Route: 065
  26. AVELOX [Concomitant]
     Active Substance: MOXIFLOXACIN HYDROCHLORIDE
     Route: 065
  27. SODIUM CHLORIDE. [Concomitant]
     Active Substance: SODIUM CHLORIDE
     Route: 065
  28. OXYGEN. [Concomitant]
     Active Substance: OXYGEN
     Route: 065

REACTIONS (4)
  - Oedema peripheral [Unknown]
  - Weight increased [Unknown]
  - Vasodilatation [Unknown]
  - Tenderness [Unknown]

NARRATIVE: CASE EVENT DATE: 20170526
